FAERS Safety Report 8522327-4 (Version None)
Quarter: 2012Q3

REPORT INFORMATION
  Report Type: 
  Country: None (occurrence: None)
  Receive Date: 20120719
  Receipt Date: 20120706
  Transmission Date: 20120928
  Serious: Yes (Death)
  Sender: FDA-Public Use
  Company Number: US-ARROW-2012-11937

PATIENT
  Sex: Male

DRUGS (1)
  1. FENTANYL-25 [Suspect]
     Indication: PAIN
     Dosage: UNK
     Route: 062
     Dates: end: 20100809

REACTIONS (3)
  - TOXICITY TO VARIOUS AGENTS [None]
  - DRUG LEVEL INCREASED [None]
  - OVERDOSE [None]
